FAERS Safety Report 6620416-2 (Version None)
Quarter: 2010Q1

REPORT INFORMATION
  Report Type: 
  Country: None (occurrence: None)
  Receive Date: 20100309
  Receipt Date: 20100305
  Transmission Date: 20100710
  Serious: Yes (Other)
  Sender: FDA-Public Use
  Company Number: US-PFIZER INC-2006098373

PATIENT
  Sex: Female

DRUGS (2)
  1. PROVERA [Suspect]
     Indication: MENOPAUSAL SYMPTOMS
     Dosage: UNK
     Route: 048
     Dates: start: 19880101, end: 19910101
  2. PREMARIN [Suspect]
     Indication: HORMONE REPLACEMENT THERAPY
     Dosage: UNK
     Route: 065
     Dates: start: 19880101, end: 19910101

REACTIONS (2)
  - BONE CANCER METASTATIC [None]
  - BREAST CANCER [None]
